FAERS Safety Report 23290028 (Version 1)
Quarter: 2023Q4

REPORT INFORMATION
  Report Type: Spontaneous
  Country: FR (occurrence: FR)
  Receive Date: 20231212
  Receipt Date: 20231212
  Transmission Date: 20240110
  Serious: Yes (Hospitalization)
  Sender: FDA-Public Use
  Company Number: None

PATIENT
  Age: 62 Year
  Sex: Female
  Weight: 54 kg

DRUGS (4)
  1. METHYLPREDNISOLONE [Suspect]
     Active Substance: METHYLPREDNISOLONE
     Indication: Gastric cancer stage IV
     Dosage: 80 MG, 1X
     Route: 051
     Dates: start: 20231016, end: 20231016
  2. METHYLPREDNISOLONE [Suspect]
     Active Substance: METHYLPREDNISOLONE
     Dosage: 80 MG, QD
     Route: 051
     Dates: start: 20231030, end: 20231030
  3. OXALIPLATIN [Suspect]
     Active Substance: OXALIPLATIN
     Indication: Gastric cancer stage IV
     Dosage: 135.1 MG, 1X; DOSE AT 100%: 85 MG//M? DRUG_DOSAGE_NUMBER : 135.15
     Dates: start: 20231016, end: 20231016
  4. OXALIPLATIN [Suspect]
     Active Substance: OXALIPLATIN
     Dosage: 101.3 MG, 1X; DOSE AT 75%: 63.75 MG//M? DRUG_DOSAGE_NUMBER : 101.36
     Route: 051
     Dates: start: 20231030, end: 20231030

REACTIONS (2)
  - Infusion related reaction [Recovered/Resolved]
  - Back pain [Recovered/Resolved]

NARRATIVE: CASE EVENT DATE: 20231016
